FAERS Safety Report 6317596-5 (Version None)
Quarter: 2009Q3

REPORT INFORMATION
  Report Type: 
  Country: None (occurrence: None)
  Receive Date: 20090821
  Receipt Date: 20090817
  Transmission Date: 20100115
  Serious: Yes (Death, Life-Threatening, Other)
  Sender: FDA-Public Use
  Company Number: JP-BRISTOL-MYERS SQUIBB COMPANY-14699128

PATIENT
  Age: 14 Year
  Sex: Male

DRUGS (1)
  1. FUNGIZONE [Suspect]
     Indication: FUNGAL INFECTION
     Route: 042

REACTIONS (4)
  - CATHETER RELATED INFECTION [None]
  - MULTI-ORGAN FAILURE [None]
  - TORSADE DE POINTES [None]
  - VENTRICULAR FIBRILLATION [None]
